FAERS Safety Report 21638423 (Version 2)
Quarter: 2022Q4

REPORT INFORMATION
  Report Type: Report from Study
  Country: PH (occurrence: PH)
  Receive Date: 20221124
  Receipt Date: 20221128
  Transmission Date: 20230113
  Serious: Yes (Other)
  Sender: FDA-Public Use
  Company Number: PH-002147023-NVSC2022PH255382

PATIENT
  Age: 23 Year
  Sex: Male
  Weight: 39.7 kg

DRUGS (12)
  1. BEDAQUILINE [Suspect]
     Active Substance: BEDAQUILINE
     Indication: Tuberculosis
     Dosage: CODE NOT BROKEN
     Route: 048
     Dates: start: 20221020, end: 20221103
  2. CLOFAZIMINE [Suspect]
     Active Substance: CLOFAZIMINE
     Indication: Tuberculosis
     Dosage: CODE NOT BROKEN
     Route: 048
     Dates: start: 20221020, end: 20221103
  3. DELAMANID [Suspect]
     Active Substance: DELAMANID
     Indication: Tuberculosis
     Dosage: CODE NOT BROKEN
     Route: 048
     Dates: start: 20221020, end: 20221103
  4. LEVOFLOXACIN [Suspect]
     Active Substance: LEVOFLOXACIN
     Indication: Tuberculosis
     Dosage: CODE NOT BROKEN
     Route: 048
     Dates: start: 20221020, end: 20221103
  5. LINEZOLID [Suspect]
     Active Substance: LINEZOLID
     Indication: Tuberculosis
     Dosage: CODE NOT BROKEN
     Route: 048
     Dates: start: 20221020, end: 20221103
  6. INVESTIGATIONAL PRODUCT [Suspect]
     Active Substance: INVESTIGATIONAL PRODUCT
     Indication: Tuberculosis
     Dosage: CODE NOT BROKEN
     Route: 048
     Dates: start: 20221020, end: 20221103
  7. PLACEBO [Suspect]
     Active Substance: UNSPECIFIED INGREDIENT
     Indication: Tuberculosis
     Dosage: CODE NOT BROKEN
     Route: 048
     Dates: start: 20221020, end: 20221103
  8. DELAMANID [Suspect]
     Active Substance: DELAMANID
     Indication: Tuberculosis
     Dosage: 300 MG
     Route: 048
     Dates: start: 20221020, end: 20221103
  9. LEVOFLOXACIN [Suspect]
     Active Substance: LEVOFLOXACIN
     Indication: Tuberculosis
     Dosage: 1000 MG
     Route: 048
     Dates: start: 20221020, end: 20221103
  10. BEDAQUILINE [Suspect]
     Active Substance: BEDAQUILINE
     Indication: Tuberculosis
     Dosage: 200 MG
     Route: 048
     Dates: start: 20221020, end: 20221103
  11. LINEZOLID [Suspect]
     Active Substance: LINEZOLID
     Indication: Tuberculosis
     Dosage: 1200 MG
     Route: 048
     Dates: start: 20221020, end: 20221103
  12. PYRIDOXINE [Concomitant]
     Active Substance: PYRIDOXINE
     Indication: Product used for unknown indication
     Dosage: UNK
     Route: 065

REACTIONS (1)
  - Seizure [Recovered/Resolved]

NARRATIVE: CASE EVENT DATE: 20221103
